FAERS Safety Report 9498321 (Version 1)
Quarter: 2013Q3

REPORT INFORMATION
  Report Type: Spontaneous
  Country: JP (occurrence: JP)
  Receive Date: 20130904
  Receipt Date: 20130904
  Transmission Date: 20140515
  Serious: Yes (Death)
  Sender: FDA-Public Use
  Company Number: JP-PFIZER INC-2013253642

PATIENT
  Sex: Male

DRUGS (2)
  1. NORVASC [Suspect]
     Route: 048
  2. ARTIST [Concomitant]
     Route: 048

REACTIONS (1)
  - Death [Fatal]
